FAERS Safety Report 6247606-5 (Version None)
Quarter: 2009Q2

REPORT INFORMATION
  Report Type: 
  Country: None (occurrence: None)
  Receive Date: 20090626
  Receipt Date: 20090610
  Transmission Date: 20091009
  Serious: Yes (Other)
  Sender: FDA-Public Use
  Company Number: US-ROCHE-640172

PATIENT
  Age: 62 Year
  Sex: Female

DRUGS (6)
  1. PEGASYS [Suspect]
     Route: 065
     Dates: start: 20080601, end: 20081201
  2. PEGASYS [Suspect]
     Route: 065
     Dates: start: 20090301
  3. COPEGUS [Suspect]
     Route: 065
     Dates: start: 20080601, end: 20081201
  4. ALBUTEROL [Concomitant]
     Indication: DRUG USE FOR UNKNOWN INDICATION
     Dosage: 3-4 YEARS
  5. MILK THISTLE [Concomitant]
     Indication: DRUG USE FOR UNKNOWN INDICATION
     Dosage: STARTED RECENTLY
  6. PROZAC [Concomitant]
     Indication: DRUG USE FOR UNKNOWN INDICATION
     Dosage: SINCE START OF FIRST TREATMENT COURSE

REACTIONS (7)
  - ABDOMINAL PAIN LOWER [None]
  - ABDOMINAL PAIN UPPER [None]
  - CONSTIPATION [None]
  - DIARRHOEA [None]
  - FAECES DISCOLOURED [None]
  - GALLBLADDER PAIN [None]
  - VIRAL LOAD INCREASED [None]
